FAERS Safety Report 5199914-7 (Version None)
Quarter: 2007Q1

REPORT INFORMATION
  Report Type: 
  Country: None (occurrence: None)
  Receive Date: 20070103
  Receipt Date: 20061221
  Transmission Date: 20070707
  Serious: Yes (Death)
  Sender: FDA-Public Use
  Company Number: HQWYE622107NOV06

PATIENT
  Sex: Female

DRUGS (1)
  1. TYGACIL [Suspect]
     Dosage: 50 MG 1X PER 12 HR, INTRAVENOUS
     Route: 042
     Dates: start: 20061101, end: 20061104

REACTIONS (1)
  - DEATH [None]
